FAERS Safety Report 20759458 (Version 2)
Quarter: 2022Q2

REPORT INFORMATION
  Report Type: Spontaneous
  Country: US (occurrence: US)
  Receive Date: 20220427
  Receipt Date: 20220623
  Transmission Date: 20220721
  Serious: No
  Sender: FDA-Public Use
  Company Number: US-BioHaven Pharmaceuticals-2022BHV000563

PATIENT
  Age: 64 Year
  Sex: Female
  Weight: 81.720 kg

DRUGS (1)
  1. NURTEC ODT [Suspect]
     Active Substance: RIMEGEPANT SULFATE
     Indication: Product used for unknown indication
     Dosage: 1 TAB EVERY OTHER DAY
     Route: 048
     Dates: start: 202201

REACTIONS (1)
  - Drug ineffective [Recovered/Resolved]
